FAERS Safety Report 17322995 (Version 1)
Quarter: 2020Q1

REPORT INFORMATION
  Report Type: Spontaneous
  Country: US (occurrence: US)
  Receive Date: 20200124
  Receipt Date: 20200124
  Transmission Date: 20200409
  Serious: Yes (Hospitalization)
  Sender: FDA-Public Use
  Company Number: None

PATIENT
  Age: 48 Year
  Sex: Male

DRUGS (7)
  1. COPAXONE [Concomitant]
     Active Substance: GLATIRAMER ACETATE
  2. DALFAMPRIDIN [Concomitant]
  3. DAFAMPRIDINE [Suspect]
     Active Substance: DALFAMPRIDINE
     Indication: MULTIPLE SCLEROSIS
     Route: 048
     Dates: start: 20190516
  4. DONEPREZIL [Concomitant]
     Active Substance: DONEPEZIL HYDROCHLORIDE
  5. ESOMEPRA [Concomitant]
     Active Substance: ESOMEPRAZOLE
  6. TAMSULOSIN [Concomitant]
     Active Substance: TAMSULOSIN
  7. ATORVASTATIN [Concomitant]
     Active Substance: ATORVASTATIN

REACTIONS (1)
  - Therapy cessation [None]

NARRATIVE: CASE EVENT DATE: 20200116
